FAERS Safety Report 23449918 (Version 1)
Quarter: 2024Q1

REPORT INFORMATION
  Report Type: Spontaneous
  Country: SK (occurrence: SK)
  Receive Date: 20240129
  Receipt Date: 20240129
  Transmission Date: 20240410
  Serious: Yes (Other)
  Sender: FDA-Public Use
  Company Number: None

PATIENT
  Age: 74 Year
  Sex: Female

DRUGS (8)
  1. PROLIA [Suspect]
     Active Substance: DENOSUMAB
     Indication: Osteoporosis
     Dosage: UNK (DURING THIS PERIOD, THE PATIENT EXPERIENCED ONLY 2 DOSAGE FORMS (IN 2020, ON 07 JUN 2023))
     Route: 065
  2. Vigantol [Concomitant]
     Indication: Product used for unknown indication
     Dosage: 3 DROP
     Route: 065
  3. UNSPECIFIED INGREDIENT [Concomitant]
     Active Substance: UNSPECIFIED INGREDIENT
     Indication: Product used for unknown indication
     Dosage: UNK
     Route: 065
  4. BIOMIN H [Concomitant]
     Indication: Product used for unknown indication
     Dosage: 1 DOSAGE FORM, QD
     Route: 048
  5. EUTHYROX [Concomitant]
     Active Substance: LEVOTHYROXINE SODIUM
     Indication: Hyperthyroidism
     Dosage: 1 DOSAGE FORM (1-0-0)
     Route: 048
  6. MONKASTA [Concomitant]
     Indication: Product used for unknown indication
     Dosage: 1 DOSAGE FORM (0-0-1)
     Route: 048
     Dates: start: 2020
  7. OMARIT [Concomitant]
     Indication: Product used for unknown indication
     Dosage: 1 DOSAGE FORM (1-0-0)
     Route: 048
  8. AZOXIMER BROMIDE [Concomitant]
     Active Substance: AZOXIMER BROMIDE
     Indication: Product used for unknown indication
     Dosage: 1 DOSAGE FORM, Q2WK
     Route: 065
     Dates: start: 2020

REACTIONS (6)
  - Neuropathy peripheral [Not Recovered/Not Resolved]
  - Neck pain [Recovered/Resolved]
  - Pyrexia [Recovered/Resolved]
  - Myalgia [Not Recovered/Not Resolved]
  - Headache [Recovered/Resolved]
  - Bone pain [Not Recovered/Not Resolved]

NARRATIVE: CASE EVENT DATE: 20230607
